FAERS Safety Report 6327793-0 (Version None)
Quarter: 2009Q3

REPORT INFORMATION
  Report Type: 
  Country: None (occurrence: None)
  Receive Date: 20090824
  Receipt Date: 20090813
  Transmission Date: 20100115
  Serious: Yes (Death)
  Sender: FDA-Public Use
  Company Number: 2009-03292

PATIENT
  Age: 65 Year
  Sex: Male

DRUGS (17)
  1. VELCADE [Suspect]
     Indication: MULTIPLE MYELOMA
  2. REVLIMID [Suspect]
     Indication: MULTIPLE MYELOMA
     Dosage: 25 MG, ORAL
     Route: 048
     Dates: start: 20080401, end: 20080401
  3. THALIDOMIDE [Suspect]
     Indication: MULTIPLE MYELOMA
     Dosage: 100 MG, 50 MG
     Dates: start: 20070501, end: 20070601
  4. THALIDOMIDE [Suspect]
     Indication: MULTIPLE MYELOMA
     Dosage: 100 MG, 50 MG
     Dates: start: 20090301, end: 20090401
  5. ALKERAN [Suspect]
     Indication: DRUG USE FOR UNKNOWN INDICATION
  6. CYTOXAN [Suspect]
     Indication: HAEMATOPOIETIC STEM CELL MOBILISATION
     Dates: start: 20080710
  7. POTASSIUM (POTASSIUM) [Concomitant]
  8. LASIX [Concomitant]
  9. FLOMAX [Concomitant]
  10. INSULIN (INSULIN) [Concomitant]
  11. MAXZIDE [Concomitant]
  12. AVANDIA [Concomitant]
  13. METOPROLOL TARTRATE [Concomitant]
  14. GEMFIBROZIL [Concomitant]
  15. METFORMIN HCL [Concomitant]
  16. TEMAZEPAM [Concomitant]
  17. G-CSF (GRANULOCYTE COLONY STIMULATING FACTOR) [Concomitant]

REACTIONS (9)
  - ERYTHEMA [None]
  - MALIGNANT NEOPLASM PROGRESSION [None]
  - MULTIPLE MYELOMA [None]
  - PARAESTHESIA [None]
  - PATHOLOGICAL FRACTURE [None]
  - RASH GENERALISED [None]
  - RASH PRURITIC [None]
  - RIB FRACTURE [None]
  - TREATMENT FAILURE [None]
